FAERS Safety Report 5696397-5 (Version None)
Quarter: 2008Q2

REPORT INFORMATION
  Report Type: 
  Country: None (occurrence: None)
  Receive Date: 20080408
  Receipt Date: 20080328
  Transmission Date: 20081010
  Serious: Yes (Other)
  Sender: FDA-Public Use
  Company Number: US-RANBAXY-2008RR-14087

PATIENT

DRUGS (1)
  1. IBUPROFEN [Suspect]

REACTIONS (2)
  - HEPATITIS [None]
  - STEVENS-JOHNSON SYNDROME [None]
